FAERS Safety Report 6939290-X (Version None)
Quarter: 2010Q3

REPORT INFORMATION
  Report Type: 
  Country: None (occurrence: None)
  Receive Date: 20100824
  Receipt Date: 20100716
  Transmission Date: 20110219
  Serious: No
  Sender: FDA-Public Use
  Company Number: US-MYLANLABS-2010S1012630

PATIENT
  Age: 38 Year
  Sex: Male
  Weight: 90.72 kg

DRUGS (3)
  1. LEVETIRACETAM [Suspect]
     Indication: EPILEPSY
     Route: 048
     Dates: start: 20100401
  2. DILANTIN [Concomitant]
     Indication: EPILEPSY
     Route: 048
  3. DIOVAN [Concomitant]
     Indication: BLOOD PRESSURE INCREASED
     Route: 048

REACTIONS (3)
  - PHOTOSENSITIVITY REACTION [None]
  - PRURITUS [None]
  - URTICARIA [None]
